FAERS Safety Report 6314411-0 (Version None)
Quarter: 2009Q3

REPORT INFORMATION
  Report Type: 
  Country: None (occurrence: None)
  Receive Date: 20090819
  Receipt Date: 20090806
  Transmission Date: 20100115
  Serious: Yes (Other)
  Sender: FDA-Public Use
  Company Number: LB-ROCHE-649254

PATIENT
  Sex: Female

DRUGS (4)
  1. XELODA [Suspect]
     Indication: OVARIAN CANCER
     Route: 048
  2. XELODA [Suspect]
     Dosage: DOSE REDUCED FROM 3 TABLETS BID TO 2 TABLETS.
     Route: 048
  3. CAELYX [Suspect]
     Indication: DRUG USE FOR UNKNOWN INDICATION
     Route: 065
  4. CAELYX [Suspect]
     Dosage: DOSE REDUCED FOR THE SECOND CYCLE.
     Route: 065

REACTIONS (3)
  - PALMAR-PLANTAR ERYTHRODYSAESTHESIA SYNDROME [None]
  - SKIN EXFOLIATION [None]
  - STOMATITIS [None]
